FAERS Safety Report 7601929-3 (Version None)
Quarter: 2011Q3

REPORT INFORMATION
  Report Type: 
  Country: None (occurrence: None)
  Receive Date: 20110711
  Receipt Date: 20110705
  Transmission Date: 20111222
  Serious: Yes (Congenital Anomaly, Other)
  Sender: FDA-Public Use
  Company Number: US-PFIZER INC-2008049836

PATIENT
  Sex: Female
  Weight: 2 kg

DRUGS (6)
  1. ZOLOFT [Suspect]
     Dosage: 25 MG, 1X/DAY
     Route: 064
     Dates: start: 20050801
  2. OXYCODONE HCL AND ACETAMINOPHEN [Concomitant]
     Indication: PAIN
     Dosage: 6 EVERY 1 AS NECESSARYEVERY 4 HOURS AS NEEDED
     Route: 064
     Dates: start: 20050101
  3. OVIDREL [Concomitant]
     Indication: INFERTILITY FEMALE
     Dosage: 250 UG, UNK
     Route: 064
  4. TRIAMCINOLONE [Concomitant]
     Dosage: UNK
     Route: 064
  5. PROMETHAZINE [Concomitant]
     Indication: NAUSEA
     Dosage: EVERY 6 HOURS AS NEEDED
     Route: 064
     Dates: start: 20050101
  6. LETROZOLE [Concomitant]
     Indication: INFERTILITY FEMALE
     Dosage: TWO TABLETS DAILY
     Route: 064

REACTIONS (11)
  - VENTRICULAR SEPTAL DEFECT [None]
  - GASTROOESOPHAGEAL REFLUX DISEASE [None]
  - HYPOTHALAMO-PITUITARY DISORDER [None]
  - AORTIC DISORDER [None]
  - CEREBELLAR HYPOPLASIA [None]
  - CONGENITAL PULMONARY HYPERTENSION [None]
  - SPINE MALFORMATION [None]
  - MATERNAL EXPOSURE DURING PREGNANCY [None]
  - NERVOUS SYSTEM DISORDER [None]
  - CONGENITAL CENTRAL NERVOUS SYSTEM ANOMALY [None]
  - PATENT DUCTUS ARTERIOSUS [None]
